FAERS Safety Report 6095894-0 (Version None)
Quarter: 2009Q1

REPORT INFORMATION
  Report Type: 
  Country: None (occurrence: None)
  Receive Date: 20090227
  Receipt Date: 20080709
  Transmission Date: 20090719
  Serious: No
  Sender: FDA-Public Use
  Company Number: A0736720A

PATIENT
  Age: 40 Year
  Sex: Male

DRUGS (2)
  1. LAMICTAL [Suspect]
     Indication: BIPOLAR DISORDER
     Dosage: 25MG PER DAY
     Route: 048
     Dates: start: 20080701, end: 20080701
  2. ENBREL [Concomitant]

REACTIONS (5)
  - DYSPNOEA [None]
  - EAR DISCOMFORT [None]
  - HYPERSENSITIVITY [None]
  - MUSCULAR WEAKNESS [None]
  - SINUS CONGESTION [None]
